FAERS Safety Report 7604558-0 (Version None)
Quarter: 2011Q3

REPORT INFORMATION
  Report Type: 
  Country: None (occurrence: None)
  Receive Date: 20110712
  Receipt Date: 20110629
  Transmission Date: 20111222
  Serious: Yes (Death)
  Sender: FDA-Public Use
  Company Number: US-UCBSA-036472

PATIENT
  Age: 31 Year
  Sex: Male

DRUGS (5)
  1. ALPRAZOLAM [Suspect]
  2. CHLORCYCLIZINE [Suspect]
  3. HYDROXYZINE HCL [Suspect]
  4. OXYCODONE HCL [Suspect]
  5. ETHANOL [Suspect]

REACTIONS (2)
  - TOXICITY TO VARIOUS AGENTS [None]
  - ACCIDENTAL OVERDOSE [None]
